FAERS Safety Report 5659127-9 (Version None)
Quarter: 2008Q1

REPORT INFORMATION
  Report Type: 
  Country: None (occurrence: None)
  Receive Date: 20080311
  Receipt Date: 20070523
  Transmission Date: 20080703
  Serious: No
  Sender: FDA-Public Use
  Company Number: US-BAYER-200711668BCC

PATIENT
  Age: 74 Year
  Sex: Male
  Weight: 82 kg

DRUGS (7)
  1. ALEVE [Suspect]
     Indication: MUSCULOSKELETAL PAIN
     Dosage: UNIT DOSE: 220 MG
     Route: 048
     Dates: start: 20070411
  2. ALEVE [Suspect]
     Dosage: AS USED: 220 MG  UNIT DOSE: 220 MG
     Route: 048
     Dates: start: 20070418, end: 20070522
  3. VERAPAMIL [Concomitant]
  4. SIMVASTATIN [Concomitant]
  5. FISH OIL [Concomitant]
  6. SUPER B12 COMPLEX [Concomitant]
  7. SAW PALMETTO [Concomitant]

REACTIONS (1)
  - BLOOD PRESSURE INCREASED [None]
